FAERS Safety Report 9817570 (Version 1)
Quarter: 2014Q1

REPORT INFORMATION
  Report Type: Report from Study
  Country: AU (occurrence: AU)
  Receive Date: 20140115
  Receipt Date: 20140115
  Transmission Date: 20141002
  Serious: Yes (Other)
  Sender: FDA-Public Use
  Company Number: AU-ROCHE-1333206

PATIENT
  Sex: Male
  Weight: 73 kg

DRUGS (1)
  1. AVASTIN [Suspect]
     Indication: COLORECTAL CANCER METASTATIC
     Route: 065
     Dates: start: 20130730, end: 20131028

REACTIONS (1)
  - Disease progression [Unknown]
